FAERS Safety Report 13671802 (Version 1)
Quarter: 2017Q2

REPORT INFORMATION
  Report Type: Spontaneous
  Country: US (occurrence: US)
  Receive Date: 20170620
  Receipt Date: 20170620
  Transmission Date: 20170830
  Serious: No
  Sender: FDA-Public Use
  Company Number: None

PATIENT
  Age: 53 Year
  Sex: Male

DRUGS (2)
  1. DUPIXENT [Suspect]
     Active Substance: DUPILUMAB
     Indication: ECZEMA
     Dosage: 300MG/2ML SYRINGE -INITIAL = 600MG - MAITENANCE 300MG/Q2WEEKS SQ/UNDER THE SKIN
     Route: 058
     Dates: start: 20170526
  2. DUPIXENT [Suspect]
     Active Substance: DUPILUMAB
     Indication: PSORIASIS
     Dosage: 300MG/2ML SYRINGE -INITIAL = 600MG - MAITENANCE 300MG/Q2WEEKS SQ/UNDER THE SKIN
     Route: 058
     Dates: start: 20170526

REACTIONS (1)
  - Overdose [None]

NARRATIVE: CASE EVENT DATE: 20170609
